FAERS Safety Report 15667915 (Version 2)
Quarter: 2018Q4

REPORT INFORMATION
  Report Type: Spontaneous
  Country: US (occurrence: US)
  Receive Date: 20181128
  Receipt Date: 20181204
  Transmission Date: 20190205
  Serious: No
  Sender: FDA-Public Use
  Company Number: US-AMGEN-USASP2018169653

PATIENT
  Age: 58 Year
  Sex: Male

DRUGS (2)
  1. ENBREL [Suspect]
     Active Substance: ETANERCEPT
     Dosage: 50 MG, QWK
     Route: 065
  2. ENBREL [Suspect]
     Active Substance: ETANERCEPT
     Indication: ANKYLOSING SPONDYLITIS
     Dosage: 50 MG, QWK
     Route: 065
     Dates: start: 2015

REACTIONS (3)
  - Arthralgia [Unknown]
  - Musculoskeletal stiffness [Unknown]
  - Product storage error [Unknown]

NARRATIVE: CASE EVENT DATE: 2018
